FAERS Safety Report 18055598 (Version 1)
Quarter: 2020Q3

REPORT INFORMATION
  Report Type: Report from Study
  Country: US (occurrence: US)
  Receive Date: 20200722
  Receipt Date: 20200722
  Transmission Date: 20201103
  Serious: Yes (Hospitalization)
  Sender: FDA-Public Use
  Company Number: US-EISAI MEDICAL RESEARCH-EC-2020-070750

PATIENT
  Age: 66 Year
  Sex: Female

DRUGS (4)
  1. LENVIMA [Suspect]
     Active Substance: LENVATINIB
     Route: 048
     Dates: start: 2020, end: 2020
  2. KEYTRUDA [Concomitant]
     Active Substance: PEMBROLIZUMAB
  3. LENVIMA [Suspect]
     Active Substance: LENVATINIB
     Route: 048
     Dates: start: 20200306, end: 2020
  4. LENVIMA [Suspect]
     Active Substance: LENVATINIB
     Indication: ENDOMETRIAL CANCER
     Route: 048
     Dates: start: 20200204, end: 2020

REACTIONS (9)
  - Myalgia [Not Recovered/Not Resolved]
  - Infection [Unknown]
  - Hypertension [Recovering/Resolving]
  - Thyroid disorder [Unknown]
  - Thyroid function test abnormal [Unknown]
  - Decreased appetite [Not Recovered/Not Resolved]
  - Thyroid hormones decreased [Not Recovered/Not Resolved]
  - Blister [Recovering/Resolving]
  - Illness [Not Recovered/Not Resolved]

NARRATIVE: CASE EVENT DATE: 2020
